FAERS Safety Report 20961023 (Version 1)
Quarter: 2022Q2

REPORT INFORMATION
  Report Type: Spontaneous
  Country: IT (occurrence: IT)
  Receive Date: 20220615
  Receipt Date: 20220615
  Transmission Date: 20220721
  Serious: Yes (Death, Hospitalization, Other)
  Sender: FDA-Public Use
  Company Number: IT-LUPIN PHARMACEUTICALS INC.-2022-08558

PATIENT
  Age: 65 Year
  Sex: Male

DRUGS (2)
  1. PHENYTOIN SODIUM [Suspect]
     Active Substance: PHENYTOIN SODIUM
     Indication: Epilepsy
     Dosage: 100 MG, QD
     Route: 065
  2. CLARITHROMYCIN [Concomitant]
     Active Substance: CLARITHROMYCIN
     Indication: COVID-19 pneumonia
     Dosage: 1000 MG, QD
     Route: 065

REACTIONS (3)
  - Overdose [Fatal]
  - Arrhythmic storm [Fatal]
  - Drug level increased [Fatal]
